FAERS Safety Report 4686171-0 (Version None)
Quarter: 2005Q2

REPORT INFORMATION
  Report Type: 
  Country: None (occurrence: None)
  Receive Date: 20050606
  Receipt Date: 20050519
  Transmission Date: 20051028
  Serious: Yes (Disabling)
  Sender: FDA-Public Use
  Company Number: JP_050506592

PATIENT
  Age: 63 Year
  Sex: Female
  Weight: 45 kg

DRUGS (5)
  1. EVISTA [Suspect]
     Indication: OSTEOPOROSIS
     Dosage: 60 MG/1 DAY
     Dates: start: 20050412, end: 20050510
  2. PREDNISOLONE [Concomitant]
  3. ONEALFA (ALFACALCIDOL) [Concomitant]
  4. FAMOTIDINE [Concomitant]
  5. PRAVASTATIN [Concomitant]

REACTIONS (3)
  - BLINDNESS UNILATERAL [None]
  - RETINAL ARTERY EMBOLISM [None]
  - VISUAL ACUITY REDUCED [None]
